FAERS Safety Report 14972649 (Version 3)
Quarter: 2018Q2

REPORT INFORMATION
  Report Type: Spontaneous
  Country: US (occurrence: US)
  Receive Date: 20180605
  Receipt Date: 20180620
  Transmission Date: 20180711
  Serious: No
  Sender: FDA-Public Use
  Company Number: US-PFIZER INC-2018227136

PATIENT
  Age: 64 Year
  Sex: Female
  Weight: 60 kg

DRUGS (2)
  1. METHOTREXATE SODIUM. [Suspect]
     Active Substance: METHOTREXATE SODIUM
     Dosage: 0.6 ML, WEEKLY
     Dates: end: 20160208
  2. MELOXICAM. [Concomitant]
     Active Substance: MELOXICAM
     Dosage: UNK UNK, DAILY (1/2 TABLET TO 1 TABLET PER DAY)

REACTIONS (1)
  - Drug ineffective [Unknown]
